FAERS Safety Report 18583732 (Version 1)
Quarter: 2020Q4

REPORT INFORMATION
  Report Type: Report from Study
  Country: CA (occurrence: CA)
  Receive Date: 20201207
  Receipt Date: 20201207
  Transmission Date: 20210114
  Serious: Yes (Other)
  Sender: FDA-Public Use
  Company Number: CA-JNJFOC-20200614003

PATIENT
  Sex: Male
  Weight: 104.5 kg

DRUGS (1)
  1. STELARA [Suspect]
     Active Substance: USTEKINUMAB
     Indication: CROHN^S DISEASE
     Route: 058

REACTIONS (7)
  - Fatigue [Not Recovered/Not Resolved]
  - Crohn^s disease [Unknown]
  - Haemoglobin decreased [Unknown]
  - Headache [Unknown]
  - Pain [Unknown]
  - Blood iron decreased [Unknown]
  - Arthralgia [Unknown]
